FAERS Safety Report 12435425 (Version 3)
Quarter: 2018Q2

REPORT INFORMATION
  Report Type: Spontaneous
  Country: US (occurrence: US)
  Receive Date: 20160603
  Receipt Date: 20180625
  Transmission Date: 20180711
  Serious: No
  Sender: FDA-Public Use
  Company Number: US-ROCHE-1676956

PATIENT
  Sex: Female

DRUGS (2)
  1. XELODA [Suspect]
     Active Substance: CAPECITABINE
     Dosage: 2000MG IN AM, 1500MG IN AFTERNOON; 2X DAY FOR 14 DAYS AND OFF FOR 7 DAYS
     Route: 048
     Dates: start: 20151028
  2. XELODA [Suspect]
     Active Substance: CAPECITABINE
     Indication: PRODUCT USED FOR UNKNOWN INDICATION
     Dosage: 14 DAYS ON AND OFF FOR 7 DAYS
     Route: 048
     Dates: start: 20151027

REACTIONS (4)
  - Pain in extremity [Unknown]
  - Skin exfoliation [Unknown]
  - Skin discolouration [Unknown]
  - Dry skin [Unknown]
